FAERS Safety Report 9019874 (Version 2)
Quarter: 2013Q1

REPORT INFORMATION
  Report Type: Spontaneous
  Country: CA (occurrence: CA)
  Receive Date: 20130118
  Receipt Date: 20130214
  Transmission Date: 20140127
  Serious: Yes (Other)
  Sender: FDA-Public Use
  Company Number: CA-BAYER-2013-004253

PATIENT
  Age: 29 Year
  Sex: Female
  Weight: 57.6 kg

DRUGS (2)
  1. YASMIN 21 [Suspect]
     Dosage: UNK
     Dates: start: 200612, end: 20130106
  2. YASMIN 21 [Suspect]
     Dosage: UNK
     Dates: start: 20130114

REACTIONS (3)
  - Migraine with aura [None]
  - Blindness unilateral [None]
  - Contraindication to medical treatment [None]
